FAERS Safety Report 9556839 (Version 5)
Quarter: 2016Q2

REPORT INFORMATION
  Report Type: Spontaneous
  Country: US (occurrence: US)
  Receive Date: 20130926
  Receipt Date: 20160406
  Transmission Date: 20160815
  Serious: No
  Sender: FDA-Public Use
  Company Number: US-009507513-1309USA010327

PATIENT
  Sex: Male
  Weight: 68.27 kg

DRUGS (5)
  1. PROPECIA [Suspect]
     Active Substance: FINASTERIDE
     Dosage: 1 MG, QD
     Route: 048
     Dates: start: 20071204
  2. PROSCAR [Suspect]
     Active Substance: FINASTERIDE
     Indication: ALOPECIA
     Dosage: 1.25 MG, UNK
     Route: 048
     Dates: start: 20091006
  3. PROPECIA [Suspect]
     Active Substance: FINASTERIDE
     Dosage: 1 MG, QD
     Route: 048
     Dates: start: 20060201
  4. PROPECIA [Suspect]
     Active Substance: FINASTERIDE
     Dosage: 1 MG, QD
     Route: 048
     Dates: start: 20040929, end: 20060811
  5. PROPECIA [Suspect]
     Active Substance: FINASTERIDE
     Indication: ALOPECIA
     Dosage: 1 MG, QD
     Route: 048
     Dates: start: 19991112, end: 20020419

REACTIONS (27)
  - Acne [Unknown]
  - Hyperhidrosis [Unknown]
  - Hepatitis B [Unknown]
  - Ligament sprain [Unknown]
  - Cyst [Unknown]
  - Inappropriate schedule of drug administration [Unknown]
  - Wrong technique in product usage process [Unknown]
  - Spermatocele [Unknown]
  - Varicocele [Unknown]
  - Lipoma [Unknown]
  - Erectile dysfunction [Not Recovered/Not Resolved]
  - Hypercholesterolaemia [Unknown]
  - Haemorrhoids [Unknown]
  - Eye operation [Unknown]
  - Malaise [Unknown]
  - Hydrocele [Unknown]
  - Anxiety [Unknown]
  - Wisdom teeth removal [Unknown]
  - Hypertension [Unknown]
  - Insomnia [Unknown]
  - Libido decreased [Not Recovered/Not Resolved]
  - Sexual dysfunction [Not Recovered/Not Resolved]
  - Overdose [Unknown]
  - Fungal skin infection [Unknown]
  - Nocturia [Unknown]
  - Fatigue [Unknown]
  - Depression [Unknown]

NARRATIVE: CASE EVENT DATE: 200410
